FAERS Safety Report 15144844 (Version 1)
Quarter: 2018Q3

REPORT INFORMATION
  Report Type: Other
  Country: None (occurrence: US)
  Receive Date: 20180713
  Receipt Date: 20180713
  Transmission Date: 20181010
  Serious: Yes (Death, Hospitalization, Other)
  Sender: FDA-Public Use
  Company Number: US-MEDAC PHARMA, INC.-2051986

PATIENT
  Age: 59 Year
  Sex: Female

DRUGS (5)
  1. RITUXIMAB. [Suspect]
     Active Substance: RITUXIMAB
  2. TACROLIMUS. [Suspect]
     Active Substance: TACROLIMUS
  3. SIROLIMUS. [Suspect]
     Active Substance: SIROLIMUS
  4. FLUDARABINE [Suspect]
     Active Substance: FLUDARABINE PHOSPHATE
  5. METHOTREXATE. [Suspect]
     Active Substance: METHOTREXATE
     Indication: GRAFT VERSUS HOST DISEASE

REACTIONS (2)
  - JC virus infection [Fatal]
  - Progressive multifocal leukoencephalopathy [Fatal]
